FAERS Safety Report 6289220-1 (Version None)
Quarter: 2009Q3

REPORT INFORMATION
  Report Type: 
  Country: None (occurrence: None)
  Receive Date: 20090729
  Receipt Date: 20070531
  Transmission Date: 20100115
  Serious: Yes (Other)
  Sender: FDA-Public Use
  Company Number: US-ASTRAZENECA-2006UW03253

PATIENT
  Age: 39 Year
  Sex: Female
  Weight: 113.4 kg

DRUGS (23)
  1. SEROQUEL [Suspect]
     Indication: SLEEP DISORDER
     Route: 048
     Dates: start: 20021001, end: 20070201
  2. SEROQUEL [Suspect]
     Indication: BIPOLAR DISORDER
     Route: 048
     Dates: start: 20021001, end: 20070201
  3. SEROQUEL [Suspect]
     Dosage: 25 - 300 MG
     Route: 048
     Dates: start: 20021014
  4. SEROQUEL [Suspect]
     Dosage: 25 - 300 MG
     Route: 048
     Dates: start: 20021014
  5. GEODON [Concomitant]
     Dates: start: 20050701, end: 20050801
  6. ZYPREXA/SYMBYAX [Concomitant]
     Dosage: 5 - 20 MG
     Dates: start: 20010501, end: 20051201
  7. METHADONE HCL [Concomitant]
     Dates: start: 20070101
  8. PLAVIX [Concomitant]
  9. ATENOLOL [Concomitant]
  10. LIPITOR [Concomitant]
  11. DEPAKOTE [Concomitant]
  12. AVELOX [Concomitant]
  13. CAMPRAL [Concomitant]
  14. AMBIEN [Concomitant]
  15. XANAX [Concomitant]
  16. PROPOXYPHENE HCL CAP [Concomitant]
  17. CLOMIPRAMINE HCL [Concomitant]
  18. LOVASTATIN [Concomitant]
  19. PREDNISONE [Concomitant]
  20. DIAZEPAM [Concomitant]
  21. CITALOPRAM HYDROBROMIDE [Concomitant]
  22. LITHIUM CARBONATE [Concomitant]
  23. TRAZODONE HCL [Concomitant]

REACTIONS (9)
  - ARTERIOSCLEROSIS [None]
  - BLOOD CHOLESTEROL INCREASED [None]
  - CARDIAC DISORDER [None]
  - HYPOTENSION [None]
  - HYSTERECTOMY [None]
  - PANCREATITIS [None]
  - RENAL STONE REMOVAL [None]
  - TYPE 2 DIABETES MELLITUS [None]
  - WEIGHT INCREASED [None]
